FAERS Safety Report 6140964-1 (Version None)
Quarter: 2009Q2

REPORT INFORMATION
  Report Type: 
  Country: None (occurrence: None)
  Receive Date: 20090402
  Receipt Date: 20081023
  Transmission Date: 20091009
  Serious: No
  Sender: FDA-Public Use
  Company Number: US-KINGPHARMUSA00001-K200801224

PATIENT
  Sex: Female
  Weight: 68.027 kg

DRUGS (8)
  1. SKELAXIN [Suspect]
     Indication: FIBROMYALGIA
     Dosage: 800 MG, BID AS NEEDED
     Route: 048
     Dates: start: 20080601
  2. SKELAXIN [Suspect]
     Indication: ARTHRALGIA
  3. IBUPROFEN [Concomitant]
     Indication: ARTHRALGIA
  4. THYROID PREPARATIONS [Concomitant]
  5. OXYCODONE HCL [Concomitant]
     Indication: ARTHRALGIA
  6. HORMONES NOS [Concomitant]
  7. DIAZEPAM [Concomitant]
     Indication: MENIERE'S DISEASE
  8. TRAZODONE [Concomitant]
     Indication: INSOMNIA

REACTIONS (3)
  - EYE SWELLING [None]
  - NAUSEA [None]
  - RASH [None]
